FAERS Safety Report 10774199 (Version 1)
Quarter: 2015Q1

REPORT INFORMATION
  Report Type: Spontaneous
  Country: US (occurrence: US)
  Receive Date: 20150208
  Receipt Date: 20150208
  Transmission Date: 20150721
  Serious: Yes (Life-Threatening, Hospitalization)
  Sender: FDA-Public Use
  Company Number: US-ROCHE-1534103

PATIENT
  Age: 67 Year
  Sex: Male
  Weight: 81.72 kg

DRUGS (2)
  1. AVASTIN [Suspect]
     Active Substance: BEVACIZUMAB
     Indication: COLORECTAL CANCER
     Route: 042
     Dates: end: 201501
  2. LISINOPRIL. [Concomitant]
     Active Substance: LISINOPRIL
     Indication: BLOOD PRESSURE
     Route: 048

REACTIONS (2)
  - Cardiac tamponade [Unknown]
  - Aortic dissection [Not Recovered/Not Resolved]

NARRATIVE: CASE EVENT DATE: 201502
